FAERS Safety Report 6321806-8 (Version None)
Quarter: 2009Q3

REPORT INFORMATION
  Report Type: 
  Country: None (occurrence: None)
  Receive Date: 20090824
  Receipt Date: 20090820
  Transmission Date: 20100115
  Serious: Yes (Other)
  Sender: FDA-Public Use
  Company Number: US-BRISTOL-MYERS SQUIBB COMPANY-14749386

PATIENT
  Age: 79 Year
  Sex: Female
  Weight: 62 kg

DRUGS (17)
  1. ORENCIA [Suspect]
     Indication: RHEUMATOID ARTHRITIS
     Dates: start: 20060101
  2. ENBREL [Concomitant]
  3. HUMIRA [Concomitant]
  4. NABUMETONE [Concomitant]
  5. PLAQUENIL [Concomitant]
  6. FOLIC ACID [Concomitant]
  7. METHOTREXATE [Concomitant]
  8. PREDNISONE TAB [Concomitant]
  9. FOSAMAX [Concomitant]
  10. LIPITOR [Concomitant]
  11. SYNTHROID [Concomitant]
  12. SPIRIVA [Concomitant]
     Dosage: SPIRIVA INHALER
  13. ATACAND [Concomitant]
  14. XOPENEX [Concomitant]
  15. OMACOR [Concomitant]
  16. TOPROL-XL [Concomitant]
  17. VITAMIN [Concomitant]

REACTIONS (2)
  - DRUG INEFFECTIVE [None]
  - OSTEOARTHRITIS [None]
